FAERS Safety Report 4268804-6 (Version None)
Quarter: 2004Q1

REPORT INFORMATION
  Report Type: 
  Country: None (occurrence: None)
  Receive Date: 20040112
  Receipt Date: 20040112
  Transmission Date: 20041129
  Serious: Yes (Other)
  Sender: FDA-Public Use
  Company Number: None

PATIENT
  Age: 57 Year
  Sex: Female
  Weight: 60 kg

DRUGS (2)
  1. TERBINAFINE HCL [Suspect]
     Indication: ONYCHOMYCOSIS
     Dosage: 250 MG DAY ORAL
     Route: 048
     Dates: start: 20031117, end: 20040104
  2. TANDRILAX-ACHE' [Concomitant]

REACTIONS (3)
  - AGEUSIA [None]
  - MARKEDLY REDUCED DIETARY INTAKE [None]
  - PAIN [None]
